FAERS Safety Report 5805175-5 (Version None)
Quarter: 2008Q3

REPORT INFORMATION
  Report Type: 
  Country: None (occurrence: None)
  Receive Date: 20080707
  Receipt Date: 20080625
  Transmission Date: 20090109
  Serious: Yes (Death, Hospitalization)
  Sender: FDA-Public Use
  Company Number: 2008AL003276

PATIENT
  Age: 75 Year
  Sex: Male
  Weight: 63.5036 kg

DRUGS (13)
  1. DIGOXIN [Suspect]
     Indication: EXTRASYSTOLES
     Dosage: 0.25 MG DAILY PO
     Route: 048
     Dates: start: 20000201, end: 20080406
  2. LEVOTHYROXINE SODIUM [Concomitant]
  3. ASPIRIN [Concomitant]
  4. ZOCOR [Concomitant]
  5. FLOMAX [Concomitant]
  6. PROTONIX [Concomitant]
  7. ELMIRON [Concomitant]
  8. FLONASE [Concomitant]
  9. PHENAZOPYRIDINE HCL TAB [Concomitant]
  10. AMITRIPTYLINE HCL [Concomitant]
  11. CALCIUM [Concomitant]
  12. HYDROCHLOROTHIAZIDE [Concomitant]
  13. KLOR-CON [Concomitant]

REACTIONS (7)
  - CATARACT OPERATION [None]
  - CHEST PAIN [None]
  - COLONOSCOPY [None]
  - CYSTITIS INTERSTITIAL [None]
  - MUSCULOSKELETAL DISORDER [None]
  - THROMBOSIS [None]
  - TRANSIENT ISCHAEMIC ATTACK [None]
